FAERS Safety Report 9470358 (Version 1)
Quarter: 2013Q3

REPORT INFORMATION
  Report Type: Spontaneous
  Country: US (occurrence: US)
  Receive Date: 20130822
  Receipt Date: 20130822
  Transmission Date: 20140515
  Serious: Yes (Hospitalization)
  Sender: FDA-Public Use
  Company Number: US-SANOFI-AVENTIS-2013SA003222

PATIENT
  Age: 77 Year
  Sex: Male

DRUGS (10)
  1. MULTAQ [Suspect]
     Indication: PRODUCT USED FOR UNKNOWN INDICATION
     Route: 048
  2. COREG [Suspect]
     Indication: PRODUCT USED FOR UNKNOWN INDICATION
  3. NEBIVOLOL [Suspect]
     Indication: PRODUCT USED FOR UNKNOWN INDICATION
  4. BLINDED THERAPY [Concomitant]
     Indication: TYPE 2 DIABETES MELLITUS
     Route: 065
     Dates: start: 20110217
  5. NPH INSULIN [Concomitant]
     Indication: TYPE 2 DIABETES MELLITUS
  6. INSULIN ASPART [Concomitant]
     Indication: TYPE 2 DIABETES MELLITUS
     Dates: start: 20111130
  7. ASPIRIN [Concomitant]
  8. NIACIN [Concomitant]
  9. LEVOTHYROXINE [Concomitant]
     Dates: start: 20120222
  10. ROBITUSSIN AC ^ROBINS^ [Concomitant]
     Dates: start: 20120529

REACTIONS (1)
  - Bradycardia [Recovered/Resolved]
